FAERS Safety Report 6152650-2 (Version None)
Quarter: 2009Q2

REPORT INFORMATION
  Report Type: 
  Country: None (occurrence: None)
  Receive Date: 20090413
  Receipt Date: 20090401
  Transmission Date: 20091009
  Serious: Yes (Death, Life-Threatening, Hospitalization, Other)
  Sender: FDA-Public Use
  Company Number: BR-ROCHE-625512

PATIENT
  Sex: Female
  Weight: 55 kg

DRUGS (4)
  1. PEGASYS [Suspect]
     Indication: HEPATITIS C
     Route: 058
     Dates: start: 20081101
  2. RIBAVIRIN [Suspect]
     Indication: HEPATITIS C
     Route: 048
     Dates: start: 20081101, end: 20090312
  3. GLIBENCLAMIDE [Concomitant]
     Indication: DIABETES MELLITUS
     Dosage: DRUG NAME: GLIBENCAMIDE
  4. METFORMIN HCL [Concomitant]
     Indication: DIABETES MELLITUS

REACTIONS (10)
  - ANAEMIA [None]
  - ASTHENIA [None]
  - BACTERIURIA [None]
  - DEATH [None]
  - DYSPNOEA [None]
  - HYPOPHAGIA [None]
  - LEUKOPENIA [None]
  - MALAISE [None]
  - PAIN [None]
  - THROMBOCYTOPENIA [None]
